FAERS Safety Report 4275885-2 (Version None)
Quarter: 2004Q1

REPORT INFORMATION
  Report Type: 
  Country: None (occurrence: None)
  Receive Date: 20040121
  Receipt Date: 20030220
  Transmission Date: 20041129
  Serious: No
  Sender: FDA-Public Use
  Company Number: US-GLAXOSMITHKLINE-A0397350A

PATIENT
  Age: 82 Year
  Sex: Male
  Weight: 92.3 kg

DRUGS (2)
  1. VALTREX [Suspect]
     Dosage: 1CAPL TWICE PER DAY
     Route: 048
     Dates: start: 20030208, end: 20030209
  2. PREDNISONE [Concomitant]
     Dosage: 20MG THREE TIMES PER DAY
     Route: 048
     Dates: start: 20030209, end: 20030210

REACTIONS (1)
  - PHARYNGOLARYNGEAL PAIN [None]
